FAERS Safety Report 7624278-6 (Version None)
Quarter: 2011Q3

REPORT INFORMATION
  Report Type: 
  Country: None (occurrence: None)
  Receive Date: 20110720
  Receipt Date: 20110714
  Transmission Date: 20111222
  Serious: Yes (Other)
  Sender: FDA-Public Use
  Company Number: CHPA2011US09391

PATIENT
  Age: 8 Year
  Sex: Male

DRUGS (1)
  1. LAMISIL [Suspect]
     Indication: TINEA INFECTION
     Dosage: UNK, UNK
     Route: 061

REACTIONS (3)
  - HALLUCINATION [None]
  - OVERDOSE [None]
  - INCORRECT DOSE ADMINISTERED [None]
